FAERS Safety Report 18747821 (Version 5)
Quarter: 2022Q2

REPORT INFORMATION
  Report Type: Spontaneous
  Country: US (occurrence: US)
  Receive Date: 20210115
  Receipt Date: 20220419
  Transmission Date: 20220721
  Serious: No
  Sender: FDA-Public Use
  Company Number: US-PFIZER INC-2021024430

PATIENT
  Age: 71 Year
  Sex: Female

DRUGS (5)
  1. IBRANCE [Suspect]
     Active Substance: PALBOCICLIB
     Dosage: 100 MG
  2. IBRANCE [Suspect]
     Active Substance: PALBOCICLIB
     Dosage: 100 MG
     Dates: start: 20210121
  3. IBRANCE [Suspect]
     Active Substance: PALBOCICLIB
     Dosage: 100 MG
     Dates: start: 20210208, end: 20210302
  4. IBRANCE [Suspect]
     Active Substance: PALBOCICLIB
     Dosage: 100 MG
     Dates: start: 20210603
  5. FASLODEX [Concomitant]
     Active Substance: FULVESTRANT
     Dosage: UNK

REACTIONS (13)
  - Product dose omission issue [Unknown]
  - Renal cyst [Unknown]
  - Lung disorder [Unknown]
  - Intervertebral disc protrusion [Unknown]
  - Neoplasm progression [Unknown]
  - Nightmare [Unknown]
  - Fatigue [Unknown]
  - Tenderness [Recovered/Resolved]
  - Alopecia [Unknown]
  - COVID-19 [Recovering/Resolving]
  - Salivary hypersecretion [Unknown]
  - Dry skin [Unknown]
  - Pruritus [Unknown]

NARRATIVE: CASE EVENT DATE: 20191227
